FAERS Safety Report 6138992-5 (Version None)
Quarter: 2009Q1

REPORT INFORMATION
  Report Type: 
  Country: None (occurrence: None)
  Receive Date: 20090331
  Receipt Date: 20090319
  Transmission Date: 20090719
  Serious: Yes (Other)
  Sender: FDA-Public Use
  Company Number: GB-MERCK-0903GBR00063

PATIENT
  Age: 56 Year
  Sex: Male

DRUGS (4)
  1. ZOCOR [Suspect]
     Indication: HYPERCHOLESTEROLAEMIA
     Route: 048
     Dates: start: 20090304
  2. ERYTHROMYCIN [Concomitant]
     Route: 065
  3. FLOXACILLIN [Concomitant]
     Route: 065
  4. QUININE [Concomitant]
     Route: 065

REACTIONS (3)
  - AMNESIA [None]
  - RASH GENERALISED [None]
  - SKIN EXFOLIATION [None]
